FAERS Safety Report 7618194-3 (Version None)
Quarter: 2011Q3

REPORT INFORMATION
  Report Type: 
  Country: None (occurrence: None)
  Receive Date: 20110718
  Receipt Date: 20110623
  Transmission Date: 20111222
  Serious: Yes (Death, Hospitalization, Disabling)
  Sender: FDA-Public Use
  Company Number: US-GLAXOSMITHKLINE-A0883266A

PATIENT
  Age: 34 Year
  Sex: Male

DRUGS (2)
  1. AVANDAMET [Suspect]
     Indication: DIABETES MELLITUS
     Route: 065
     Dates: start: 20031231, end: 20050505
  2. AVANDIA [Suspect]
     Indication: DIABETES MELLITUS
     Dosage: 8MG PER DAY
     Route: 065
     Dates: start: 20050604, end: 20071111

REACTIONS (7)
  - ATRIOVENTRICULAR BLOCK SECOND DEGREE [None]
  - CARDIAC FAILURE CONGESTIVE [None]
  - PULMONARY OEDEMA [None]
  - MYOCARDIAL INFARCTION [None]
  - HYPOXIC-ISCHAEMIC ENCEPHALOPATHY [None]
  - CARDIOMYOPATHY [None]
  - VENTRICULAR TACHYCARDIA [None]
